FAERS Safety Report 20641416 (Version 4)
Quarter: 2023Q1

REPORT INFORMATION
  Report Type: Spontaneous
  Country: GB (occurrence: GB)
  Receive Date: 20220328
  Receipt Date: 20230318
  Transmission Date: 20230418
  Serious: Yes (Hospitalization, Other)
  Sender: FDA-Public Use
  Company Number: GB-ROCHE-3050196

PATIENT
  Age: 68 Year
  Sex: Female
  Weight: 65.4 kg

DRUGS (10)
  1. BEVACIZUMAB [Suspect]
     Active Substance: BEVACIZUMAB
     Indication: Non-small cell lung cancer metastatic
     Dosage: 1000 MILLIGRAM
     Route: 065
     Dates: start: 20220106
  2. ATEZOLIZUMAB [Suspect]
     Active Substance: ATEZOLIZUMAB
     Indication: Non-small cell lung cancer metastatic
     Dosage: 1200 MILLIGRAM, Q3WK (DOSE LAST STUDY DRUG ADMIN PRIOR AE/SAE WAS 1200 MG AND START DATE OF MOST REC
     Route: 042
     Dates: start: 20220106
  3. CARBOPLATIN [Suspect]
     Active Substance: CARBOPLATIN
     Indication: Non-small cell lung cancer metastatic
     Dosage: 500 MILLIGRAM
     Route: 065
     Dates: start: 20220106
  4. PACLITAXEL [Suspect]
     Active Substance: PACLITAXEL
     Indication: Non-small cell lung cancer metastatic
     Dosage: 336 MILLIGRAM
     Route: 065
     Dates: start: 20220106
  5. DACOMITINIB [Concomitant]
     Active Substance: DACOMITINIB
     Indication: Neoplasm malignant
     Dosage: UNK
  6. DACOMITINIB [Concomitant]
     Active Substance: DACOMITINIB
     Dosage: UNK, UNK
  7. OSIMERTINIB [Concomitant]
     Active Substance: OSIMERTINIB
     Indication: Neoplasm malignant
     Dosage: UNK
  8. OSIMERTINIB [Concomitant]
     Active Substance: OSIMERTINIB
  9. AKYNZEO [Concomitant]
     Dosage: 300 MILLIGRAM
     Route: 065
     Dates: start: 20220106, end: 20220106
  10. ATEZOLIZUMAB [Concomitant]
     Active Substance: ATEZOLIZUMAB

REACTIONS (2)
  - Neutropenic sepsis [Recovered/Resolved]
  - Rash [Recovered/Resolved]

NARRATIVE: CASE EVENT DATE: 20220111
